FAERS Safety Report 23039776 (Version 1)
Quarter: 2023Q4

REPORT INFORMATION
  Report Type: Spontaneous
  Country: US (occurrence: None)
  Receive Date: 20231006
  Receipt Date: 20231006
  Transmission Date: 20240110
  Serious: Yes (Hospitalization)
  Sender: FDA-Public Use
  Company Number: None

PATIENT
  Age: 52 Year
  Sex: Female
  Weight: 83.7 kg

DRUGS (1)
  1. ENHERTU [Suspect]
     Active Substance: FAM-TRASTUZUMAB DERUXTECAN-NXKI
     Indication: Neoplasm malignant
     Dates: start: 20230413, end: 20230413

REACTIONS (12)
  - Nausea [None]
  - Pain in extremity [None]
  - Feeding disorder [None]
  - Insomnia [None]
  - Gait disturbance [None]
  - Bone pain [None]
  - Pain of skin [None]
  - Sepsis [None]
  - Pneumonia [None]
  - Pneumonitis [None]
  - Unwanted awareness during anaesthesia [None]
  - Traumatic lung injury [None]

NARRATIVE: CASE EVENT DATE: 20230630
